FAERS Safety Report 23883806 (Version 1)
Quarter: 2024Q2

REPORT INFORMATION
  Report Type: Spontaneous
  Country: US (occurrence: None)
  Receive Date: 20240521
  Receipt Date: 20240521
  Transmission Date: 20240716
  Serious: Yes (Other)
  Sender: FDA-Public Use
  Company Number: None

PATIENT
  Age: 72 Year
  Sex: Female
  Weight: 64.9 kg

DRUGS (9)
  1. ACTEMRA ACTPEN [Suspect]
     Active Substance: TOCILIZUMAB
     Indication: Giant cell arteritis
     Dosage: 0.9 ML ONCE WEEKLY SUBCUTANEOUS
     Route: 058
  2. QUETIAPINE [Concomitant]
     Active Substance: QUETIAPINE
  3. metoprolol ER 25mg [Concomitant]
  4. cholestyramine 4gm [Concomitant]
  5. LEVOTHYROXINE [Concomitant]
     Active Substance: LEVOTHYROXINE\LEVOTHYROXINE SODIUM
  6. Toujeo Max Solostar U300 [Concomitant]
  7. Freestyle Libre 2 [Concomitant]
  8. rivastigmine patch 4.6mg/24 hr [Concomitant]
  9. mirtazepine 7.5mg [Concomitant]

REACTIONS (2)
  - Neoplasm malignant [None]
  - Drug ineffective [None]

NARRATIVE: CASE EVENT DATE: 20240513
